FAERS Safety Report 4647823-1 (Version None)
Quarter: 2005Q2

REPORT INFORMATION
  Report Type: 
  Country: None (occurrence: None)
  Receive Date: 20050428
  Receipt Date: 20050318
  Transmission Date: 20051028
  Serious: Yes (Hospitalization, Other)
  Sender: FDA-Public Use
  Company Number: US-GLAXOSMITHKLINE-A0550641A

PATIENT
  Age: 16 Year
  Sex: Female
  Weight: 81.8 kg

DRUGS (2)
  1. WELLBUTRIN [Suspect]
     Indication: ILL-DEFINED DISORDER
     Route: 048
     Dates: start: 20030720, end: 20041007
  2. UNKNOWN [Concomitant]

REACTIONS (4)
  - AMNESIA [None]
  - AURA [None]
  - GRAND MAL CONVULSION [None]
  - TIC [None]
